FAERS Safety Report 16707994 (Version 1)
Quarter: 2019Q3

REPORT INFORMATION
  Report Type: Spontaneous
  Country: FR (occurrence: FR)
  Receive Date: 20190815
  Receipt Date: 20190815
  Transmission Date: 20191004
  Serious: Yes (Hospitalization, Other)
  Sender: FDA-Public Use
  Company Number: FR-PFIZER INC-2019344330

PATIENT
  Age: 74 Year
  Sex: Male

DRUGS (3)
  1. CARBOPLATIN. [Suspect]
     Active Substance: CARBOPLATIN
     Indication: NON-HODGKIN^S LYMPHOMA
     Dosage: 500 MG, CYCLIC
     Route: 042
     Dates: start: 20190320
  2. RITUXIMAB. [Suspect]
     Active Substance: RITUXIMAB
     Indication: NON-HODGKIN^S LYMPHOMA
     Dosage: 680 MG, CYCLIC
     Route: 042
     Dates: start: 20190320
  3. DEXAMETHASONE. [Concomitant]
     Active Substance: DEXAMETHASONE
     Indication: PROPHYLAXIS
     Dosage: 40 MG, UNK
     Dates: start: 20190320

REACTIONS (8)
  - Dermatitis exfoliative generalised [Not Recovered/Not Resolved]
  - Cough [Not Recovered/Not Resolved]
  - Off label use [Unknown]
  - Asthenia [Not Recovered/Not Resolved]
  - Vertigo [Not Recovered/Not Resolved]
  - Dyspnoea [Not Recovered/Not Resolved]
  - Product use in unapproved indication [Unknown]
  - Amyotrophy [Not Recovered/Not Resolved]

NARRATIVE: CASE EVENT DATE: 20190320
